FAERS Safety Report 6529009-9 (Version None)
Quarter: 2009Q4

REPORT INFORMATION
  Report Type: 
  Country: None (occurrence: None)
  Receive Date: 20091230
  Receipt Date: 20091215
  Transmission Date: 20100525
  Serious: Yes (Death, Life-Threatening, Hospitalization)
  Sender: FDA-Public Use
  Company Number: PAR_02080_2008

PATIENT
  Age: 25 Year
  Sex: Male

DRUGS (14)
  1. IBUPROFEN [Suspect]
     Indication: PAIN IN EXTREMITY
     Dosage: (DF)
  2. CIPROFLOXACIN [Suspect]
     Indication: PNEUMOCYSTIS JIROVECI PNEUMONIA
     Dosage: (DF)
  3. CLARITHROMYCIN [Suspect]
     Indication: PNEUMOCYSTIS JIROVECI PNEUMONIA
     Dosage: (DF)
  4. COMBIVIR [Suspect]
     Indication: ACQUIRED IMMUNODEFICIENCY SYNDROME
     Dosage: (DF)
     Dates: start: 20030311, end: 20030327
  5. EFAVIRENZ [Suspect]
     Indication: ACQUIRED IMMUNODEFICIENCY SYNDROME
     Dosage: (DF)
     Dates: start: 20030311, end: 20030327
  6. TRIMETHOPRIM + SULFAMETHOXAZOLE [Suspect]
     Indication: PNEUMOCYSTIS JIROVECI PNEUMONIA
     Dosage: (DF)
  7. TRIMETHOPRIM + SULFAMETHOXAZOLE [Suspect]
     Indication: PROPHYLAXIS
     Dosage: (DF)
  8. NEVIRAPINE [Suspect]
     Indication: ACQUIRED IMMUNODEFICIENCY SYNDROME
     Dosage: (200 MG QD)
     Dates: start: 20030408, end: 20030417
  9. TENOFOVIR DISOPROXIL FUMARATE [Suspect]
     Indication: ACQUIRED IMMUNODEFICIENCY SYNDROME
     Dosage: (300 MG QD)
     Dates: start: 20030408, end: 20030417
  10. LAMIVUDINE [Suspect]
     Indication: ACQUIRED IMMUNODEFICIENCY SYNDROME
     Dosage: (300 MG QD ORAL)
     Route: 048
     Dates: start: 20030408, end: 20030417
  11. SEPTRIN [Concomitant]
  12. ZIDOVUDINE [Concomitant]
  13. LOPERAMIDE HYDROCHLORIDE [Concomitant]
  14. BACTRIM [Concomitant]

REACTIONS (9)
  - AGITATION [None]
  - BIOPSY LIVER ABNORMAL [None]
  - CHOLANGITIS [None]
  - COUGH [None]
  - HAEMOGLOBIN DECREASED [None]
  - HEPATIC FAILURE [None]
  - HEPATOTOXICITY [None]
  - PAIN IN EXTREMITY [None]
  - VANISHING BILE DUCT SYNDROME [None]
